FAERS Safety Report 5862090-9 (Version None)
Quarter: 2008Q3

REPORT INFORMATION
  Report Type: 
  Country: None (occurrence: None)
  Receive Date: 20080827
  Receipt Date: 20080827
  Transmission Date: 20090109
  Serious: Yes (Life-Threatening)
  Sender: FDA-Public Use
  Company Number: None

PATIENT
  Sex: Female
  Weight: 77.1115 kg

DRUGS (3)
  1. VERSED [Suspect]
  2. LISINOPRIL [Concomitant]
  3. HYDROCHLOROTHIAZIDE [Concomitant]

REACTIONS (1)
  - HYPOXIA [None]
